FAERS Safety Report 6183551-1 (Version None)
Quarter: 2009Q2

REPORT INFORMATION
  Report Type: 
  Country: None (occurrence: None)
  Receive Date: 20090508
  Receipt Date: 20090429
  Transmission Date: 20091009
  Serious: Yes (Congenital Anomaly)
  Sender: FDA-Public Use
  Company Number: AU-RANBAXY-2009RR-23310

PATIENT

DRUGS (2)
  1. VALPROIC ACID [Suspect]
     Indication: EPILEPSY
     Dosage: 2 G, QD
     Route: 015
  2. TOPIRAMATE [Suspect]
     Indication: EPILEPSY
     Dosage: 200 MG, QD
     Route: 015
     Dates: start: 19990201

REACTIONS (3)
  - CONGENITAL HYDROCEPHALUS [None]
  - NEONATAL DISORDER [None]
  - SPINA BIFIDA [None]
